FAERS Safety Report 20662350 (Version 1)
Quarter: 2022Q2

REPORT INFORMATION
  Report Type: Spontaneous
  Country: CO (occurrence: CO)
  Receive Date: 20220401
  Receipt Date: 20220401
  Transmission Date: 20220721
  Serious: Yes (Other)
  Sender: FDA-Public Use
  Company Number: CO-AMGEN-COLSP2022052715

PATIENT
  Age: 83 Year
  Sex: Male
  Weight: 67 kg

DRUGS (12)
  1. MVASI [Suspect]
     Active Substance: BEVACIZUMAB-AWWB
     Indication: Rectal adenocarcinoma
     Dosage: 100 MILLIGRAM, QD
     Route: 042
     Dates: start: 20220113
  2. MVASI [Suspect]
     Active Substance: BEVACIZUMAB-AWWB
     Indication: Colon cancer stage IV
  3. NEULASTA [Suspect]
     Active Substance: PEGFILGRASTIM
     Indication: Rectal adenocarcinoma
     Dosage: 6 MILLIGRAM, QD
     Route: 058
     Dates: start: 20220113
  4. NEULASTA [Suspect]
     Active Substance: PEGFILGRASTIM
     Indication: Colon cancer stage IV
  5. DEXAMETHASONE PHOSPHATE [Concomitant]
     Active Substance: DEXAMETHASONE PHOSPHATE
     Indication: Rectal adenocarcinoma
     Dosage: UNK UNK, QD
     Route: 042
     Dates: start: 20220113
  6. DEXAMETHASONE PHOSPHATE [Concomitant]
     Active Substance: DEXAMETHASONE PHOSPHATE
     Indication: Colon cancer stage IV
  7. FOSAPREPITANT [Concomitant]
     Active Substance: FOSAPREPITANT
     Indication: Rectal adenocarcinoma
     Dosage: 250 MILLIGRAM, QD
     Route: 042
     Dates: start: 20220113
  8. FOSAPREPITANT [Concomitant]
     Active Substance: FOSAPREPITANT
     Indication: Colon cancer stage IV
  9. OXALIPLATIN [Concomitant]
     Active Substance: OXALIPLATIN
     Indication: Rectal adenocarcinoma
     Dosage: 500 MILLIGRAM, QD
     Route: 042
     Dates: start: 20220113
  10. OXALIPLATIN [Concomitant]
     Active Substance: OXALIPLATIN
     Indication: Colon cancer stage IV
  11. PALONOSETRON [Concomitant]
     Active Substance: PALONOSETRON
     Indication: Rectal adenocarcinoma
     Dosage: 50 MICROGRAM, QD
     Route: 042
     Dates: start: 20220113
  12. PALONOSETRON [Concomitant]
     Active Substance: PALONOSETRON
     Indication: Colon cancer stage IV

REACTIONS (2)
  - Neuropathy peripheral [Recovering/Resolving]
  - Constipation [Recovering/Resolving]

NARRATIVE: CASE EVENT DATE: 20220307
